FAERS Safety Report 21701285 (Version 3)
Quarter: 2022Q4

REPORT INFORMATION
  Report Type: Report from Study
  Country: DE (occurrence: DE)
  Receive Date: 20221208
  Receipt Date: 20221230
  Transmission Date: 20230113
  Serious: Yes (Hospitalization, Other)
  Sender: FDA-Public Use
  Company Number: None

PATIENT
  Age: 44 Year
  Sex: Male

DRUGS (8)
  1. TAMSULOSIN [Suspect]
     Active Substance: TAMSULOSIN
     Indication: Benign prostatic hyperplasia
     Dosage: 0.4 MG, UNIT DOSE :   0.4 MG, THERAPY START DATE :  ASKU
     Dates: start: 20221029, end: 20221029
  2. PANTOPRAZOLE SODIUM [Suspect]
     Active Substance: PANTOPRAZOLE SODIUM
     Indication: Prophylaxis against gastrointestinal ulcer
     Dosage: UNK, UNIT DOSE :   40 MG, DURATION : 301 DAYS
     Dates: start: 2022, end: 20221029
  3. DEXAMETHASONE [Suspect]
     Active Substance: DEXAMETHASONE
     Indication: Prophylaxis
     Dosage: UNK, DURATION : 2 MONTHS, UNIT DOSE : 2 MG
     Route: 065
     Dates: start: 202208, end: 20221029
  4. DEXAMETHASONE [Suspect]
     Active Substance: DEXAMETHASONE
     Dosage: 2 MG, UNIT DOSE :  2 MG, THERAPY START DATE :  ASKU , THERAPY END DATE : ASKU
     Route: 065
  5. IBUPROFEN [Suspect]
     Active Substance: IBUPROFEN
     Indication: Pain prophylaxis
     Dosage: 400 MG, UNIT DOSE : 400MG, THERAPY START DATE :  ASKU
     Route: 065
     Dates: start: 2022, end: 2022
  6. PALBOCICLIB [Suspect]
     Active Substance: PALBOCICLIB
     Indication: Product used for unknown indication
     Dosage: 1 DOSAGE FORM, (125 MG, CYCLIC) QD (FOR 3 WEEKS), UNIT DOSE :  125 MG , FREQUENCY TIME : 1 DAY ,  TH
     Dates: start: 20211201, end: 20220531
  7. PALBOCICLIB [Suspect]
     Active Substance: PALBOCICLIB
     Dosage: UNK, THERAPY END DATE :  ASKU
     Dates: start: 20220531
  8. BRIVIACT [Suspect]
     Active Substance: BRIVARACETAM
     Indication: Symptomatic treatment
     Dosage: 50 MG, UNIT DOSE :   50 MG,
     Dates: start: 202210, end: 20221029

REACTIONS (3)
  - Hydrocephalus [Not Recovered/Not Resolved]
  - Neoplasm progression [Not Recovered/Not Resolved]
  - Headache [Not Recovered/Not Resolved]

NARRATIVE: CASE EVENT DATE: 20221029
